FAERS Safety Report 7630798-0 (Version None)
Quarter: 2011Q3

REPORT INFORMATION
  Report Type: 
  Country: None (occurrence: None)
  Receive Date: 20110723
  Receipt Date: 20110715
  Transmission Date: 20111222
  Serious: Yes (Other)
  Sender: FDA-Public Use
  Company Number: US-ABBOTT-11P-163-0839497-00

PATIENT
  Sex: Male

DRUGS (4)
  1. HUMIRA [Suspect]
     Indication: PSORIASIS
     Dosage: 80 MG INITIAL DOSE
     Route: 058
     Dates: start: 20090304
  2. ASPIRIN [Concomitant]
     Indication: HEADACHE
     Dates: start: 19900101
  3. ALBUTEROL SULFATE AUTOHALER [Concomitant]
     Indication: ASTHMA EXERCISE INDUCED
     Dates: start: 20100101
  4. DOVONEX [Concomitant]
     Indication: PSORIASIS
     Dates: start: 19950101

REACTIONS (3)
  - LACERATION [None]
  - OEDEMA PERIPHERAL [None]
  - SKIN DISCOLOURATION [None]
